FAERS Safety Report 7405955-9 (Version None)
Quarter: 2011Q2

REPORT INFORMATION
  Report Type: 
  Country: None (occurrence: None)
  Receive Date: 20110406
  Receipt Date: 20110406
  Transmission Date: 20111010
  Serious: No
  Sender: FDA-Public Use
  Company Number: None

PATIENT
  Age: 59 Year
  Sex: Female
  Weight: 50.8029 kg

DRUGS (2)
  1. PAROXETINE HCL [Suspect]
     Indication: NAUSEA
     Dosage: 20 MG DAILY PO
     Route: 048
     Dates: start: 20101228, end: 20110405
  2. PAROXETINE HCL [Suspect]
     Indication: VOMITING
     Dosage: 20 MG DAILY PO
     Route: 048
     Dates: start: 20101228, end: 20110405

REACTIONS (4)
  - DEPRESSION [None]
  - VOMITING [None]
  - NAUSEA [None]
  - AGITATION [None]
